FAERS Safety Report 15736770 (Version 1)
Quarter: 2018Q4

REPORT INFORMATION
  Report Type: Spontaneous
  Country: US (occurrence: US)
  Receive Date: 20181218
  Receipt Date: 20181218
  Transmission Date: 20190205
  Serious: No
  Sender: FDA-Public Use
  Company Number: US-PERRIGO-18US003624

PATIENT
  Age: 83 Year
  Sex: Male
  Weight: 90.7 kg

DRUGS (4)
  1. ANTIHYPERTENSIVES [Concomitant]
     Active Substance: UNSPECIFIED INGREDIENT
     Indication: HYPERTENSION
     Dosage: UNK
     Route: 065
  2. BACITRACIN. [Suspect]
     Active Substance: BACITRACIN
     Indication: EYE INFECTION
     Dosage: SMALL AMOUNT, TID
     Route: 047
     Dates: start: 20180320, end: 20180328
  3. CIPROFLOXACIN. [Suspect]
     Active Substance: CIPROFLOXACIN
     Indication: EYE INFECTION
     Dosage: 1 GTT, TID
     Route: 047
     Dates: start: 20180320, end: 20180329
  4. LIPID MODIFYING AGENTS [Concomitant]
     Active Substance: UNSPECIFIED INGREDIENT
     Indication: BLOOD CHOLESTEROL INCREASED
     Dosage: UNK
     Route: 065

REACTIONS (1)
  - Eye pruritus [Recovering/Resolving]

NARRATIVE: CASE EVENT DATE: 20180320
